FAERS Safety Report 9356075 (Version 3)
Quarter: 2013Q3

REPORT INFORMATION
  Report Type: Spontaneous
  Country: FR (occurrence: FR)
  Receive Date: 20130619
  Receipt Date: 20130925
  Transmission Date: 20140515
  Serious: Yes (Other)
  Sender: FDA-Public Use
  Company Number: FR-TEVA-412914ISR

PATIENT
  Age: 88 Year
  Sex: Male
  Weight: 78 kg

DRUGS (11)
  1. FUROSEMIDE TEVA 40 MG [Suspect]
     Indication: CARDIAC FAILURE
     Dosage: IN THE MORNING
     Route: 048
     Dates: start: 201206, end: 20130610
  2. BISOPROLOL TEVA 5 MG [Concomitant]
     Indication: CARDIAC FAILURE
     Dosage: 10 MILLIGRAM DAILY; MORNING AND EVENING
     Route: 048
     Dates: start: 2007
  3. AMIODARONE TEVA 200 MG [Concomitant]
     Indication: CARDIAC FAILURE
     Dosage: 1 DOSAGE FORMS DAILY;
     Route: 048
     Dates: start: 2012
  4. PANTOPRAZOLE TEVA 40 MG [Concomitant]
     Indication: CARDIAC FAILURE
     Dosage: 40 MILLIGRAM DAILY;
     Route: 048
     Dates: start: 2007
  5. CRESTOR 10 MG [Concomitant]
     Indication: HYPERCHOLESTEROLAEMIA
     Dosage: 10 MILLIGRAM DAILY; EVENING
     Dates: start: 2007
  6. RAMIPRIL TEVA [Concomitant]
     Indication: CARDIAC FAILURE
     Dosage: 10 MILLIGRAM DAILY; EVENING
     Route: 048
     Dates: start: 2007
  7. EZETROL 10 MG [Concomitant]
     Dosage: 10 MILLIGRAM DAILY; EVENING
     Route: 048
     Dates: start: 2007
  8. KARDEGIC 75 [Concomitant]
     Dosage: 75 MILLIGRAM DAILY; EVENING
     Route: 048
     Dates: start: 2007
  9. PREDNISOLONE TEVA 5 MG [Concomitant]
     Indication: POLYARTHRITIS
     Route: 048
  10. PARACETAMOL TEVA 1 MG [Concomitant]
     Indication: POLYARTHRITIS
     Route: 048
  11. DAFALGAN [Concomitant]

REACTIONS (9)
  - Angina pectoris [Unknown]
  - Nocturnal dyspnoea [Recovered/Resolved]
  - Sense of oppression [Unknown]
  - Asthenia [Recovered/Resolved]
  - Somnolence [Recovered/Resolved]
  - Fatigue [Recovering/Resolving]
  - Dyspnoea [Recovered/Resolved]
  - Cough [Recovered/Resolved]
  - Dysuria [Unknown]
